FAERS Safety Report 11132658 (Version 2)
Quarter: 2015Q3

REPORT INFORMATION
  Report Type: Report from Study
  Country: HU (occurrence: HU)
  Receive Date: 20150522
  Receipt Date: 20150814
  Transmission Date: 20151125
  Serious: Yes (Hospitalization)
  Sender: FDA-Public Use
  Company Number: HU-ABBVIE-15P-076-1394307-00

PATIENT
  Age: 62 Year
  Sex: Male

DRUGS (2)
  1. DUODOPA [Suspect]
     Active Substance: CARBIDOPA\LEVODOPA
     Indication: PARKINSON^S DISEASE
     Dosage: MD:6.5ML, CD: 4.7ML/H; ED: 2.5ML
     Route: 050
     Dates: start: 201307
  2. LEVODOPA, BENSERAZIDE (MADOPAR) (NON-ABBVIE) [Concomitant]
     Indication: PARKINSON^S DISEASE
     Dosage: 200MG/50MG
     Route: 048

REACTIONS (6)
  - Gastrointestinal disorder [Unknown]
  - Gastric cancer [Unknown]
  - Gastritis [Unknown]
  - Pancreatic carcinoma [Unknown]
  - Small intestine carcinoma [Unknown]
  - Duodenitis [Unknown]

NARRATIVE: CASE EVENT DATE: 201412
